FAERS Safety Report 18288837 (Version 1)
Quarter: 2020Q3

REPORT INFORMATION
  Report Type: Spontaneous
  Country: US (occurrence: US)
  Receive Date: 20200921
  Receipt Date: 20200921
  Transmission Date: 20201103
  Serious: No
  Sender: FDA-Public Use
  Company Number: NVSC2020US253921

PATIENT
  Sex: Female

DRUGS (2)
  1. ESTRADIOL. [Suspect]
     Active Substance: ESTRADIOL
     Indication: PRODUCT USED FOR UNKNOWN INDICATION
     Dosage: UNK
     Route: 065
  2. VIVELLE?DOT [Suspect]
     Active Substance: ESTRADIOL
     Indication: PRODUCT USED FOR UNKNOWN INDICATION
     Dosage: UNK (FOR YEARS)
     Route: 065

REACTIONS (7)
  - Insomnia [Unknown]
  - Product adhesion issue [Unknown]
  - Migraine [Unknown]
  - Hot flush [Unknown]
  - Therapeutic product effect decreased [Unknown]
  - Hyperhidrosis [Unknown]
  - Chills [Unknown]
